FAERS Safety Report 10631745 (Version 4)
Quarter: 2022Q3

REPORT INFORMATION
  Report Type: Spontaneous
  Country: TN (occurrence: TN)
  Receive Date: 20141205
  Receipt Date: 20220912
  Transmission Date: 20221026
  Serious: Yes (Other)
  Sender: FDA-Public Use
  Company Number: PHHY2014TN158268

PATIENT
  Age: 54 Year
  Sex: Female

DRUGS (3)
  1. ZOMETA [Suspect]
     Active Substance: ZOLEDRONIC ACID
     Indication: Breast cancer
     Dosage: 4 MG, QMO
     Route: 042
  2. ZOMETA [Suspect]
     Active Substance: ZOLEDRONIC ACID
     Dosage: 4 MG, ONCE EVERY SIX MONTHS
     Route: 042
     Dates: start: 201406
  3. FEMARA [Suspect]
     Active Substance: LETROZOLE
     Indication: Breast cancer
     Dosage: 2.5 MG, QD
     Route: 048
     Dates: start: 201212

REACTIONS (4)
  - Fall [Unknown]
  - Humerus fracture [Recovered/Resolved]
  - Upper limb fracture [Not Recovered/Not Resolved]
  - Osteopenia [Unknown]

NARRATIVE: CASE EVENT DATE: 20140201
